FAERS Safety Report 5531744-6 (Version None)
Quarter: 2007Q4

REPORT INFORMATION
  Report Type: 
  Country: None (occurrence: None)
  Receive Date: 20071128
  Receipt Date: 20071113
  Transmission Date: 20080405
  Serious: Yes (Other)
  Sender: FDA-Public Use
  Company Number: 020752

PATIENT
  Age: 38 Year
  Sex: Female

DRUGS (2)
  1. CLARAVIS [Suspect]
     Indication: ACNE CYSTIC
     Dosage: 40MG, BID, ORAL, ORAL
     Route: 048
     Dates: start: 20070808, end: 20070901
  2. CLARAVIS [Suspect]
     Indication: ACNE CYSTIC
     Dosage: 40MG, BID, ORAL, ORAL
     Route: 048
     Dates: start: 20071113

REACTIONS (1)
  - GALLBLADDER OPERATION [None]
